FAERS Safety Report 9988000 (Version 2)
Quarter: 2014Q1

REPORT INFORMATION
  Report Type: Spontaneous
  Country: DE (occurrence: DE)
  Receive Date: 20140307
  Receipt Date: 20140328
  Transmission Date: 20141002
  Serious: Yes (Hospitalization)
  Sender: FDA-Public Use
  Company Number: ALCN2014DE001473

PATIENT
  Age: 86 Year
  Sex: Female

DRUGS (1)
  1. FLUORESCITE [Suspect]
     Indication: ANGIOGRAM
     Dosage: 1.5 ML, ONCE/SINGLE
     Route: 042
     Dates: start: 20140219, end: 20140219

REACTIONS (11)
  - Anaphylactic shock [Recovered/Resolved]
  - Laryngeal oedema [Recovered/Resolved]
  - Loss of consciousness [Recovered/Resolved]
  - Oxygen saturation decreased [Recovered/Resolved]
  - Dyspnoea [Recovered/Resolved]
  - Hypotension [Recovered/Resolved]
  - Angioedema [Recovered/Resolved]
  - Cyanosis [Recovered/Resolved]
  - Tachycardia [Recovered/Resolved]
  - Stridor [Recovered/Resolved]
  - Dysphonia [Recovered/Resolved]
